FAERS Safety Report 4729608-0 (Version None)
Quarter: 2005Q3

REPORT INFORMATION
  Report Type: 
  Country: None (occurrence: None)
  Receive Date: 20050801
  Receipt Date: 20050725
  Transmission Date: 20060218
  Serious: Yes (Death, Hospitalization)
  Sender: FDA-Public Use
  Company Number: US-MERCK-0507USA04112

PATIENT

DRUGS (1)
  1. PRIMAXIN [Suspect]
     Indication: INFECTION
     Route: 042

REACTIONS (1)
  - ANEURYSM RUPTURED [None]
